FAERS Safety Report 23604674 (Version 1)
Quarter: 2024Q1

REPORT INFORMATION
  Report Type: Spontaneous
  Country: CN (occurrence: CN)
  Receive Date: 20240307
  Receipt Date: 20240307
  Transmission Date: 20240410
  Serious: Yes (Hospitalization, Other)
  Sender: FDA-Public Use
  Company Number: CN-MankindUS-000147

PATIENT
  Age: 42 Year
  Sex: Male
  Weight: 65 kg

DRUGS (10)
  1. LIDOCAINE HYDROCHLORIDE [Suspect]
     Active Substance: LIDOCAINE HYDROCHLORIDE
     Indication: Infiltration anaesthesia
     Dosage: 2% LIDOCAINE COTTON PLEDGETS INFILTRATION
  2. CARBAMAZEPINE [Concomitant]
     Active Substance: CARBAMAZEPINE
     Indication: Generalised tonic-clonic seizure
     Dosage: 200 MG TWICE A DAY
  3. PROPOFOL [Concomitant]
     Active Substance: PROPOFOL
     Indication: Anaesthesia
     Dosage: 0.8 UG/ML
  4. REMIFENTANIL HYDROCHLORIDE [Concomitant]
     Active Substance: REMIFENTANIL HYDROCHLORIDE
     Indication: Anaesthesia
     Dosage: 1 NG/ML
  5. PROPOFOL [Concomitant]
     Active Substance: PROPOFOL
     Indication: Anaesthesia
     Dosage: 1.2 UG/ML
  6. REMIFENTANIL HYDROCHLORIDE [Concomitant]
     Active Substance: REMIFENTANIL HYDROCHLORIDE
     Indication: Anaesthesia
     Dosage: 2 NG/ML
  7. PROPOFOL [Concomitant]
     Active Substance: PROPOFOL
     Indication: Anaesthesia
     Dosage: 0.2 UG/ML
  8. PROPOFOL [Concomitant]
     Active Substance: PROPOFOL
     Indication: Anaesthesia
     Dosage: 0.5 UG/ML
  9. REMIFENTANIL HYDROCHLORIDE [Concomitant]
     Active Substance: REMIFENTANIL HYDROCHLORIDE
     Indication: Anaesthesia
     Dosage: 0.2 NG/ML
  10. REMIFENTANIL HYDROCHLORIDE [Concomitant]
     Active Substance: REMIFENTANIL HYDROCHLORIDE
     Indication: Anaesthesia
     Dosage: 0.5 NG/ML

REACTIONS (4)
  - Respiratory disorder [Recovered/Resolved]
  - Pupillary reflex impaired [Recovered/Resolved]
  - Apnoea [Unknown]
  - Loss of consciousness [Recovered/Resolved]
